FAERS Safety Report 13862350 (Version 1)
Quarter: 2017Q3

REPORT INFORMATION
  Report Type: Spontaneous
  Country: US (occurrence: US)
  Receive Date: 20170813
  Receipt Date: 20170813
  Transmission Date: 20171127
  Serious: Yes (Hospitalization, Other)
  Sender: FDA-Public Use
  Company Number: US-GLAXOSMITHKLINE-US2017123844

PATIENT
  Age: 45 Year
  Sex: Male

DRUGS (9)
  1. BENADRYL [Concomitant]
     Active Substance: DIPHENHYDRAMINE HYDROCHLORIDE
  2. DILAUDID [Concomitant]
     Active Substance: HYDROMORPHONE HYDROCHLORIDE
  3. IMITREX [Suspect]
     Active Substance: SUMATRIPTAN SUCCINATE
     Indication: MIGRAINE
     Dosage: 6 MG, PRN
     Route: 058
  4. DEPAKOTE [Concomitant]
     Active Substance: DIVALPROEX SODIUM
  5. PHENERGAN [Concomitant]
     Active Substance: PROMETHAZINE HYDROCHLORIDE
     Dosage: UNK
  6. STADOL [Concomitant]
     Active Substance: BUTORPHANOL TARTRATE
  7. COUMADIN [Concomitant]
     Active Substance: WARFARIN SODIUM
  8. DIGITALIS [Suspect]
     Active Substance: DIGITALIS
     Indication: PRODUCT USED FOR UNKNOWN INDICATION
     Dosage: UNK
     Dates: start: 20160330
  9. LAMICTAL [Concomitant]
     Active Substance: LAMOTRIGINE

REACTIONS (14)
  - Overdose [Unknown]
  - Drug administration error [Unknown]
  - Motor dysfunction [Recovered/Resolved]
  - Muscular weakness [Unknown]
  - Hypoaesthesia [Recovered/Resolved]
  - Cardiac aneurysm [Recovered/Resolved]
  - Heart valve incompetence [Recovered/Resolved]
  - Paralysis [Unknown]
  - Spinal fracture [Not Recovered/Not Resolved]
  - Arrhythmia [Recovered/Resolved]
  - Heart valve replacement [Recovered/Resolved]
  - Visual impairment [Recovered/Resolved]
  - Transient ischaemic attack [Recovered/Resolved]
  - Catheterisation cardiac [Recovered/Resolved]

NARRATIVE: CASE EVENT DATE: 201603
